FAERS Safety Report 8406033-2 (Version None)
Quarter: 2012Q2

REPORT INFORMATION
  Report Type: 
  Country: None (occurrence: None)
  Receive Date: 20120529
  Receipt Date: 20081023
  Transmission Date: 20120825
  Serious: Yes (Other)
  Sender: FDA-Public Use
  Company Number: JP-2012-14812

PATIENT

DRUGS (1)
  1. CPC-41061 (TOLVAPTAN(V.4.1) TABLET [Suspect]

REACTIONS (1)
  - RENAL FAILURE [None]
